FAERS Safety Report 4746833-3 (Version None)
Quarter: 2005Q3

REPORT INFORMATION
  Report Type: 
  Country: None (occurrence: None)
  Receive Date: 20050815
  Receipt Date: 20050801
  Transmission Date: 20060218
  Serious: Yes (Other)
  Sender: FDA-Public Use
  Company Number: USA050598758

PATIENT
  Age: 33 Year
  Sex: Male

DRUGS (1)
  1. HUMALOG [Suspect]
     Indication: DIABETES MELLITUS
     Dates: start: 19990101

REACTIONS (7)
  - ASTHENIA [None]
  - BLOOD GLUCOSE FLUCTUATION [None]
  - DEPRESSION [None]
  - DIABETES MELLITUS INADEQUATE CONTROL [None]
  - DRUG INEFFECTIVE [None]
  - EYE OPERATION [None]
  - PHARMACEUTICAL PRODUCT COMPLAINT [None]
